FAERS Safety Report 21416734 (Version 1)
Quarter: 2022Q4

REPORT INFORMATION
  Report Type: Spontaneous
  Country: None (occurrence: FR)
  Receive Date: 20221006
  Receipt Date: 20221006
  Transmission Date: 20230113
  Serious: Yes (Other)
  Sender: FDA-Public Use
  Company Number: FR-B.Braun Medical Inc.-2133512

PATIENT
  Age: 74 Year
  Sex: Female
  Weight: 94 kg

DRUGS (7)
  1. CEFTRIAXONE SODIUM [Suspect]
     Active Substance: CEFTRIAXONE SODIUM
  2. METRONIDAZOLE [Suspect]
     Active Substance: METRONIDAZOLE
  3. VALSARTAN [Concomitant]
     Active Substance: VALSARTAN
  4. TAHOR [Concomitant]
     Active Substance: ATORVASTATIN CALCIUM
  5. BISOPROLOL FUMARATE [Concomitant]
     Active Substance: BISOPROLOL FUMARATE
  6. ALLOPURINOL [Concomitant]
     Active Substance: ALLOPURINOL
  7. FUROSEMIDE [Concomitant]
     Active Substance: FUROSEMIDE

REACTIONS (1)
  - Acute generalised exanthematous pustulosis [Recovering/Resolving]
